FAERS Safety Report 4762829-X (Version None)
Quarter: 2005Q3

REPORT INFORMATION
  Report Type: 
  Country: None (occurrence: None)
  Receive Date: 20050906
  Receipt Date: 20050819
  Transmission Date: 20060218
  Serious: Yes (Life-Threatening, Hospitalization)
  Sender: FDA-Public Use
  Company Number: 2005S1007045

PATIENT
  Age: 70 Year
  Sex: Female
  Weight: 32.2054 kg

DRUGS (12)
  1. NITROFURANTOIN [Suspect]
     Indication: URINARY TRACT INFECTION
     Dosage: 50 MG; PO
     Route: 048
     Dates: start: 20030601, end: 20050610
  2. PREDNISONE TAB [Concomitant]
  3. PARACETAMOL/HYDROCODONE BITARTRATE [Concomitant]
  4. CYCLOBENZAPRINE HCL [Concomitant]
  5. FLUTICASONE PROPIONATE [Concomitant]
  6. PSEUDOEPHEDRINE SULFATE/LORATADINE [Concomitant]
  7. GLIPIZIDE [Concomitant]
  8. VALSARTAN [Concomitant]
  9. GABAPENTIN [Concomitant]
  10. PARACETAMOL [Concomitant]
  11. ESOMEPRAZOLE MAGNESIUM [Concomitant]
  12. LEVOTYROXINE SODIUM [Concomitant]

REACTIONS (5)
  - DRUG HYPERSENSITIVITY [None]
  - DRUG INEFFECTIVE [None]
  - HYPOXIA [None]
  - IDIOPATHIC PULMONARY FIBROSIS [None]
  - PNEUMONIA [None]
